FAERS Safety Report 9516631 (Version 2)
Quarter: 2014Q1

REPORT INFORMATION
  Report Type: Spontaneous
  Country: US (occurrence: None)
  Receive Date: 20130305
  Receipt Date: 20140306
  Transmission Date: 20141002
  Serious: Yes (Other)
  Sender: FDA-Public Use
  Company Number: 163-21880-12121450

PATIENT
  Age: 63 Year
  Sex: Female

DRUGS (3)
  1. REVLIMID [Suspect]
     Indication: PLASMA CELL MYELOMA
     Dosage: 25 MG, 21 IN 21 D, PO
     Route: 048
     Dates: start: 20121022
  2. VELCADE ( BORTEZOMIB) (INJECTION) [Concomitant]
  3. DECADRON ( DEXAMETHASONE) [Concomitant]

REACTIONS (1)
  - Swelling face [None]
